FAERS Safety Report 23733855 (Version 1)
Quarter: 2024Q2

REPORT INFORMATION
  Report Type: Report from Study
  Country: US (occurrence: None)
  Receive Date: 20240412
  Receipt Date: 20240412
  Transmission Date: 20240716
  Serious: Yes (Death, Other)
  Sender: FDA-Public Use
  Company Number: 2023A186559

PATIENT
  Age: 26775 Day
  Sex: Female

DRUGS (1)
  1. LYNPARZA [Suspect]
     Active Substance: OLAPARIB
     Route: 048

REACTIONS (3)
  - Death [Fatal]
  - Intestinal mass [Unknown]
  - Pancreatic disorder [Unknown]

NARRATIVE: CASE EVENT DATE: 20230807
